FAERS Safety Report 6592951-7 (Version None)
Quarter: 2010Q1

REPORT INFORMATION
  Report Type: 
  Country: None (occurrence: None)
  Receive Date: 20100222
  Receipt Date: 20100212
  Transmission Date: 20100710
  Serious: Yes (Hospitalization)
  Sender: FDA-Public Use
  Company Number: US-ELI_LILLY_AND_COMPANY-US201001004032

PATIENT
  Sex: Male

DRUGS (9)
  1. HUMALOG MIX 50/50 [Suspect]
     Indication: DIABETES MELLITUS
     Dosage: 150 U, DAILY (1/D)
  2. LANTUS [Concomitant]
     Dosage: 120 U, DAILY (1/D)
  3. POTASSIUM CHLORIDE [Concomitant]
     Dosage: 40 MEQ, 2/D
  4. AMLODIPINE [Concomitant]
     Dosage: 2.5 MG, UNKNOWN
  5. LEVOTHYROXINE SODIUM [Concomitant]
     Dosage: 150 UG, UNKNOWN
  6. PRAVASTATIN [Concomitant]
     Dosage: 40 MG, UNKNOWN
  7. TRICOR [Concomitant]
     Dosage: 145 MG, UNKNOWN
  8. ISOSORBIDE MONONITRATE [Concomitant]
     Dosage: 120 MG, UNKNOWN
  9. LASIX [Concomitant]
     Dosage: 20 MG, 2/D

REACTIONS (2)
  - BLOOD GLUCOSE DECREASED [None]
  - POOR QUALITY DRUG ADMINISTERED [None]
